FAERS Safety Report 4411011-4 (Version None)
Quarter: 2004Q3

REPORT INFORMATION
  Report Type: 
  Country: None (occurrence: None)
  Receive Date: 20040726
  Receipt Date: 20040712
  Transmission Date: 20050211
  Serious: Yes (Hospitalization)
  Sender: FDA-Public Use
  Company Number: CERZ-10609

PATIENT
  Age: 8 Year
  Sex: Male
  Weight: 46.7205 kg

DRUGS (1)
  1. CEREZYME [Suspect]
     Indication: GAUCHER'S DISEASE
     Dosage: 60 U/KG Q2WKS IV
     Route: 042
     Dates: start: 19981209

REACTIONS (3)
  - CATHETER RELATED COMPLICATION [None]
  - DEVICE FAILURE [None]
  - FOREIGN BODY TRAUMA [None]
